FAERS Safety Report 7880015-1 (Version None)
Quarter: 2011Q4

REPORT INFORMATION
  Report Type: 
  Country: None (occurrence: None)
  Receive Date: 20111101
  Receipt Date: 20111024
  Transmission Date: 20120403
  Serious: Yes (Hospitalization)
  Sender: FDA-Public Use
  Company Number: US-ASTRAZENECA-2011SE64371

PATIENT
  Age: 83 Year
  Sex: Female

DRUGS (3)
  1. STEROIDS [Suspect]
     Route: 065
  2. SYMBICORT [Suspect]
     Route: 055
  3. ATACAND HCT [Suspect]
     Route: 048

REACTIONS (2)
  - MALAISE [None]
  - SKIN FRAGILITY [None]
